FAERS Safety Report 6405395-5 (Version None)
Quarter: 2009Q4

REPORT INFORMATION
  Report Type: 
  Country: None (occurrence: None)
  Receive Date: 20091019
  Receipt Date: 20091007
  Transmission Date: 20100525
  Serious: Yes (Other)
  Sender: FDA-Public Use
  Company Number: US-PFIZER INC-2009280849

PATIENT
  Sex: Female

DRUGS (1)
  1. ESTRING [Suspect]
     Indication: VULVOVAGINAL DRYNESS
     Dosage: 2 MG, UNK
     Dates: start: 20080110

REACTIONS (5)
  - BONE DISORDER [None]
  - DRUG INEFFECTIVE [None]
  - HYPERTENSION [None]
  - VULVOVAGINAL BURNING SENSATION [None]
  - VULVOVAGINAL PAIN [None]
